FAERS Safety Report 24390237 (Version 1)
Quarter: 2024Q4

REPORT INFORMATION
  Report Type: Spontaneous
  Country: US (occurrence: US)
  Receive Date: 20241003
  Receipt Date: 20241003
  Transmission Date: 20250115
  Serious: No
  Sender: JOHNSON AND JOHNSON
  Company Number: US-JNJFOC-20240973530

PATIENT
  Age: 26 Year
  Sex: Female

DRUGS (8)
  1. BENADRYL [Suspect]
     Active Substance: DIPHENHYDRAMINE HYDROCHLORIDE
     Indication: Lip swelling
     Route: 065
     Dates: start: 202409
  2. BENADRYL [Suspect]
     Active Substance: DIPHENHYDRAMINE HYDROCHLORIDE
     Indication: Chemical burn
  3. TYLENOL [Suspect]
     Active Substance: ACETAMINOPHEN
     Indication: Lip swelling
     Route: 065
     Dates: start: 202409
  4. TYLENOL [Suspect]
     Active Substance: ACETAMINOPHEN
     Indication: Chemical burn
  5. NEOSPORIN [Suspect]
     Active Substance: BACITRACIN ZINC\NEOMYCIN SULFATE\POLYMYXIN B SULFATE
     Indication: Lip swelling
     Route: 065
     Dates: start: 202409
  6. NEOSPORIN [Suspect]
     Active Substance: BACITRACIN ZINC\NEOMYCIN SULFATE\POLYMYXIN B SULFATE
     Indication: Chemical burn
  7. MUPIROCIN [Concomitant]
     Active Substance: MUPIROCIN
     Indication: Lip swelling
     Route: 065
  8. MUPIROCIN [Concomitant]
     Active Substance: MUPIROCIN
     Indication: Chemical burn

REACTIONS (1)
  - Product use in unapproved indication [Unknown]

NARRATIVE: CASE EVENT DATE: 20240901
